FAERS Safety Report 4793815-1 (Version None)
Quarter: 2005Q4

REPORT INFORMATION
  Report Type: 
  Country: None (occurrence: None)
  Receive Date: 20051006
  Receipt Date: 20051006
  Transmission Date: 20060501
  Serious: Yes (Hospitalization)
  Sender: FDA-Public Use
  Company Number: None

PATIENT
  Age: 54 Year
  Sex: Male
  Weight: 113 kg

DRUGS (6)
  1. MONOPRIL [Suspect]
     Indication: HYPERTENSION
     Dosage: 40 MG   DAILY   PO
     Route: 048
     Dates: start: 20050101, end: 20050928
  2. ATENOLOL [Concomitant]
  3. OMEPRAZOLE [Concomitant]
  4. SIMVASTATIN [Concomitant]
  5. GLUCOTROL [Concomitant]
  6. LOPID [Concomitant]

REACTIONS (1)
  - ANGIONEUROTIC OEDEMA [None]
